FAERS Safety Report 20631633 (Version 1)
Quarter: 2022Q1

REPORT INFORMATION
  Report Type: Spontaneous
  Country: US (occurrence: None)
  Receive Date: 20220324
  Receipt Date: 20220324
  Transmission Date: 20220424
  Serious: Yes (Hospitalization)
  Sender: FDA-Public Use
  Company Number: None

PATIENT
  Sex: Female

DRUGS (1)
  1. OTEZLA [Suspect]
     Active Substance: APREMILAST
     Indication: Rheumatoid arthritis
     Dosage: 30MG TWICE DAILY BY MOUTH
     Route: 048
     Dates: start: 20201028

REACTIONS (3)
  - Autoimmune disorder [None]
  - Stress [None]
  - Condition aggravated [None]
